FAERS Safety Report 22612411 (Version 5)
Quarter: 2025Q2

REPORT INFORMATION
  Report Type: Report from Study
  Country: US (occurrence: US)
  Receive Date: 20230617
  Receipt Date: 20250430
  Transmission Date: 20250717
  Serious: Yes (Hospitalization, Other)
  Sender: TAKEDA
  Company Number: US-SHIRE-US201922583

PATIENT
  Age: 68 Year
  Sex: Male

DRUGS (33)
  1. TEDUGLUTIDE [Suspect]
     Active Substance: TEDUGLUTIDE
     Indication: Short-bowel syndrome
     Dosage: 3.2 MILLIGRAM, QD
     Dates: start: 201907
  2. TEDUGLUTIDE [Suspect]
     Active Substance: TEDUGLUTIDE
     Dosage: 3.2 MILLIGRAM, QD
     Dates: start: 20190703
  3. TEDUGLUTIDE [Suspect]
     Active Substance: TEDUGLUTIDE
  4. TEDUGLUTIDE [Suspect]
     Active Substance: TEDUGLUTIDE
     Dosage: 3.2 MILLIGRAM, QD
  5. TEDUGLUTIDE [Suspect]
     Active Substance: TEDUGLUTIDE
     Dosage: 3.2 MILLIGRAM, QD
  6. TEDUGLUTIDE [Suspect]
     Active Substance: TEDUGLUTIDE
     Dosage: 0.32 MILLILITER, QD
  7. TEDUGLUTIDE [Suspect]
     Active Substance: TEDUGLUTIDE
     Dosage: UNK UNK, QD
     Dates: start: 2019
  8. PRASTERONE [Concomitant]
     Active Substance: PRASTERONE
     Dosage: 1 DOSAGE FORM, QD
  9. DOXYLAMINE SUCCINATE [Concomitant]
     Active Substance: DOXYLAMINE SUCCINATE
     Dosage: 1 DOSAGE FORM, QD
  10. ORENCIA [Concomitant]
     Active Substance: ABATACEPT
  11. PROLIA [Concomitant]
     Active Substance: DENOSUMAB
     Dosage: UNK UNK, Q6MONTHS
  12. TYLENOL [Concomitant]
     Active Substance: ACETAMINOPHEN
     Dosage: 1 DOSAGE FORM, BID
  13. VITAMIN D3 [Concomitant]
     Active Substance: CHOLECALCIFEROL
     Dosage: 1 DOSAGE FORM, 2/MONTH
  14. XIIDRA [Concomitant]
     Active Substance: LIFITEGRAST
     Dosage: UNK UNK, BID
  15. BACLOFEN [Concomitant]
     Active Substance: BACLOFEN
     Indication: Muscle spasms
     Dosage: 1 DOSAGE FORM, TID
  16. CORTEF [Concomitant]
     Active Substance: HYDROCORTISONE
  17. MAALOX ANTACID [Concomitant]
     Active Substance: ALUMINUM HYDROXIDE\DIMETHICONE\MAGNESIUM HYDROXIDE
     Indication: Dyspepsia
     Dosage: 30 MILLIGRAM, QD
  18. ANTIVERT [Concomitant]
     Active Substance: MECLIZINE HYDROCHLORIDE
     Indication: Dizziness
     Dosage: 1 DOSAGE FORM, TID
  19. MAGNESIUM GLYCINATE [Concomitant]
     Active Substance: MAGNESIUM GLYCINATE
     Dosage: 240 MILLIGRAM, BID
  20. LIPITOR [Concomitant]
     Active Substance: ATORVASTATIN CALCIUM
     Indication: Blood cholesterol abnormal
     Dosage: 1 DOSAGE FORM, QD
  21. ACIPHEX [Concomitant]
     Active Substance: RABEPRAZOLE SODIUM
     Dosage: 1 DOSAGE FORM, QD
  22. ZYLOPRIM [Concomitant]
     Active Substance: ALLOPURINOL
     Dosage: 1 DOSAGE FORM, QD
  23. PROTONIX [Concomitant]
     Active Substance: PANTOPRAZOLE SODIUM
     Indication: Abdominal discomfort
     Dosage: 1 DOSAGE FORM, QD
  24. ONDANSETRON [Concomitant]
     Active Substance: ONDANSETRON
     Indication: Nausea
     Dosage: 1 DOSAGE FORM, TID
  25. NORVASC [Concomitant]
     Active Substance: AMLODIPINE BESYLATE
     Dosage: UNK UNK, QD
  26. TENORMIN [Concomitant]
     Active Substance: ATENOLOL
     Dosage: 2 DOSAGE FORM, QD
  27. CYANOCOBALAMIN [Concomitant]
     Active Substance: CYANOCOBALAMIN
     Dosage: 1 DOSAGE FORM, QD
  28. FLONASE [Concomitant]
     Active Substance: FLUTICASONE PROPIONATE
     Dosage: UNK UNK, QD
  29. FLOMAX [Concomitant]
     Active Substance: TAMSULOSIN HYDROCHLORIDE
     Dosage: 1 DOSAGE FORM, QD
  30. IMODIUM A-D [Concomitant]
     Active Substance: LOPERAMIDE HYDROCHLORIDE
  31. KENALOG [Concomitant]
     Active Substance: TRIAMCINOLONE ACETONIDE
  32. COVID-19 vaccine [Concomitant]
  33. VARICELLA-ZOSTER VIRUS STRAIN OKA/MERCK LIVE ANTIGEN [Concomitant]
     Active Substance: VARICELLA-ZOSTER VIRUS STRAIN OKA/MERCK LIVE ANTIGEN

REACTIONS (42)
  - Vascular device infection [Unknown]
  - Small intestinal obstruction [Unknown]
  - Pneumonia [Unknown]
  - Acute respiratory failure [Unknown]
  - Hypokalaemia [Unknown]
  - Arrhythmia [Unknown]
  - Rheumatoid arthritis [Unknown]
  - Intestinal ischaemia [Unknown]
  - Joint abscess [Unknown]
  - Staphylococcal sepsis [Unknown]
  - Chronic kidney disease [Unknown]
  - Gastrointestinal haemorrhage [Unknown]
  - Device lead damage [Unknown]
  - Inappropriate schedule of product administration [Unknown]
  - Product use issue [Not Recovered/Not Resolved]
  - Device leakage [Unknown]
  - Fistula [Unknown]
  - Dyspepsia [Unknown]
  - Leukocytosis [Unknown]
  - Pyrexia [Unknown]
  - Food intolerance [Not Recovered/Not Resolved]
  - Hypomagnesaemia [Unknown]
  - Hyperglycaemia [Unknown]
  - Anaemia [Unknown]
  - Vasculitis [Unknown]
  - Peripheral nerve lesion [Unknown]
  - Paraesthesia [Unknown]
  - Intervertebral disc degeneration [Unknown]
  - Back pain [Unknown]
  - Spinal osteoarthritis [Unknown]
  - Lumbosacral radiculopathy [Unknown]
  - Postoperative ileus [Unknown]
  - Neck pain [Unknown]
  - Gastrointestinal microorganism overgrowth [Unknown]
  - Abdominal adhesions [Unknown]
  - Anxiety [Unknown]
  - Vitamin B12 deficiency [Unknown]
  - Abdominal pain [Unknown]
  - Staphylococcal infection [Unknown]
  - Osteoarthritis [Unknown]
  - Tuberculin test positive [Unknown]
  - Thoracic radiculopathy [Unknown]

NARRATIVE: CASE EVENT DATE: 20190705
